FAERS Safety Report 16836212 (Version 1)
Quarter: 2019Q3

REPORT INFORMATION
  Report Type: Report from Study
  Country: CA (occurrence: CA)
  Receive Date: 20190921
  Receipt Date: 20190921
  Transmission Date: 20191005
  Serious: Yes (Other)
  Sender: FDA-Public Use
  Company Number: CA-AMGEN-CANCT2019115908

PATIENT
  Age: 58 Year
  Sex: Female

DRUGS (3)
  1. AIMOVIG [Suspect]
     Active Substance: ERENUMAB-AOOE
     Indication: MIGRAINE
     Dosage: 70 MILLIGRAM, QMO (VIA AUTO INJECTOR)
     Route: 058
     Dates: start: 20190402
  2. AIMOVIG [Suspect]
     Active Substance: ERENUMAB-AOOE
     Dosage: 140 MILLIGRAM, QMO (VIA AUTO INJECTOR)
     Route: 058
  3. AIMOVIG [Suspect]
     Active Substance: ERENUMAB-AOOE
     Dosage: 140 MILLIGRAM, QMO (VIA AUTO INJECTOR)
     Route: 058
     Dates: start: 20190802

REACTIONS (9)
  - Incorrect dose administered [Unknown]
  - Rash [Not Recovered/Not Resolved]
  - Urticaria [Unknown]
  - Herpes zoster [Unknown]
  - Pain [Unknown]
  - Herpes virus infection [Unknown]
  - Pruritus [Unknown]
  - Breast mass [Unknown]
  - Migraine [Unknown]

NARRATIVE: CASE EVENT DATE: 20190602
